FAERS Safety Report 9373336 (Version 1)
Quarter: 2013Q2

REPORT INFORMATION
  Report Type: Report from Study
  Country: FR (occurrence: FR)
  Receive Date: 20130627
  Receipt Date: 20130627
  Transmission Date: 20140414
  Serious: Yes (Hospitalization)
  Sender: FDA-Public Use
  Company Number: FR-VIIV HEALTHCARE LIMITED-B0901295A

PATIENT
  Age: 49 Year
  Sex: Male
  Weight: 70 kg

DRUGS (4)
  1. MARAVIROC [Suspect]
     Indication: HIV INFECTION
     Dosage: 600MG PER DAY
     Route: 048
     Dates: start: 20110526
  2. ETRAVIRINE [Concomitant]
     Dosage: 400MG PER DAY
     Dates: start: 20110418
  3. TRUVADA [Concomitant]
     Dosage: 1TAB PER DAY
     Dates: start: 20110418
  4. RIVOTRIL [Concomitant]
     Indication: PAIN
     Route: 048

REACTIONS (1)
  - Oral pain [Recovered/Resolved]
